FAERS Safety Report 9329514 (Version 1)
Quarter: 2013Q2

REPORT INFORMATION
  Report Type: Spontaneous
  Country: US (occurrence: US)
  Receive Date: 20130604
  Receipt Date: 20130604
  Transmission Date: 20140414
  Serious: No
  Sender: FDA-Public Use
  Company Number: US-SANOFI-AVENTIS-2012SA094902

PATIENT
  Age: 63 Year
  Sex: Male

DRUGS (4)
  1. LANTUS SOLOSTAR [Suspect]
     Indication: DIABETES MELLITUS
     Dosage: DOSE:40 UNIT(S)
     Route: 051
     Dates: start: 201211, end: 20121218
  2. LANTUS SOLOSTAR [Suspect]
     Indication: DIABETES MELLITUS
     Dosage: DOSE:50 UNIT(S)
     Route: 051
     Dates: start: 201211, end: 20121218
  3. SOLOSTAR [Suspect]
     Indication: DIABETES MELLITUS
     Dates: start: 201211, end: 20121218
  4. LEVEMIR [Concomitant]

REACTIONS (3)
  - Fluid retention [Recovered/Resolved]
  - Sneezing [Unknown]
  - Cough [Unknown]
